FAERS Safety Report 4686144-8 (Version None)
Quarter: 2005Q2

REPORT INFORMATION
  Report Type: 
  Country: None (occurrence: None)
  Receive Date: 20050609
  Receipt Date: 20050310
  Transmission Date: 20051028
  Serious: Yes (Hospitalization, Disabling, Other)
  Sender: FDA-Public Use
  Company Number: US-MERCK-0503USA02517

PATIENT
  Age: 52 Year
  Sex: Female
  Weight: 61 kg

DRUGS (11)
  1. VIOXX [Suspect]
     Indication: ARTHRITIS
     Route: 048
     Dates: start: 19990101, end: 19990101
  2. VIOXX [Suspect]
     Indication: PAIN
     Route: 048
     Dates: start: 19990101, end: 19990101
  3. VASOTEC [Concomitant]
     Route: 065
     Dates: start: 19990101, end: 20000101
  4. TICLID [Concomitant]
     Route: 065
     Dates: start: 19990101, end: 19990101
  5. NORVASC [Concomitant]
     Route: 065
     Dates: start: 19990101, end: 19990101
  6. ATROVENT [Concomitant]
     Route: 065
  7. K-DUR 10 [Concomitant]
     Route: 065
  8. ASPIRIN [Concomitant]
     Route: 065
  9. LASIX [Concomitant]
     Route: 065
     Dates: start: 19990101, end: 20030101
  10. CELEBREX [Concomitant]
     Route: 065
     Dates: start: 19990101, end: 20010101
  11. LOPRESSOR [Concomitant]
     Route: 065
     Dates: start: 19990101

REACTIONS (33)
  - ANGINA PECTORIS [None]
  - ATRIOVENTRICULAR BLOCK FIRST DEGREE [None]
  - BRONCHITIS [None]
  - CARDIAC FAILURE [None]
  - CARDIAC FAILURE CONGESTIVE [None]
  - CARDIAC VALVE DISEASE [None]
  - CARDIOGENIC SHOCK [None]
  - CARDIOVERSION [None]
  - CEREBROVASCULAR ACCIDENT [None]
  - CHRONIC FATIGUE SYNDROME [None]
  - CHRONIC OBSTRUCTIVE PULMONARY DISEASE [None]
  - CORONARY ARTERY DISEASE [None]
  - DEPRESSION [None]
  - DILATATION ATRIAL [None]
  - DILATATION VENTRICULAR [None]
  - DYSPNOEA [None]
  - EMOTIONAL DISTRESS [None]
  - EPISTAXIS [None]
  - FATIGUE [None]
  - HYPERCHOLESTEROLAEMIA [None]
  - HYPERSENSITIVITY [None]
  - HYPOKINESIA [None]
  - INSOMNIA [None]
  - ISCHAEMIC CARDIOMYOPATHY [None]
  - MYOCARDIAL INFARCTION [None]
  - MYOCARDIAL ISCHAEMIA [None]
  - PULMONARY HYPERTENSION [None]
  - SINUS BRADYCARDIA [None]
  - SLEEP APNOEA SYNDROME [None]
  - TRICUSPID VALVE INCOMPETENCE [None]
  - VENTRICULAR DYSFUNCTION [None]
  - VENTRICULAR HYPERTROPHY [None]
  - WEIGHT DECREASED [None]
